FAERS Safety Report 21707558 (Version 1)
Quarter: 2022Q4

REPORT INFORMATION
  Report Type: Spontaneous
  Country: US (occurrence: US)
  Receive Date: 20221209
  Receipt Date: 20221209
  Transmission Date: 20230112
  Serious: Yes (Other)
  Sender: FDA-Public Use
  Company Number: US-PFIZER INC-PV202200119498

PATIENT
  Age: 77 Year
  Sex: Female

DRUGS (2)
  1. IBRANCE [Interacting]
     Active Substance: PALBOCICLIB
     Dosage: 125 MG
  2. PROLIA [Interacting]
     Active Substance: DENOSUMAB
     Dosage: UNK

REACTIONS (3)
  - Drug interaction [Unknown]
  - Immunosuppression [Unknown]
  - White blood cell count decreased [Unknown]
